FAERS Safety Report 15553918 (Version 1)
Quarter: 2018Q4

REPORT INFORMATION
  Report Type: Spontaneous
  Country: ES (occurrence: ES)
  Receive Date: 20181026
  Receipt Date: 20181026
  Transmission Date: 20190205
  Serious: Yes (Death)
  Sender: FDA-Public Use
  Company Number: ES-SUN PHARMACEUTICAL INDUSTRIES LTD-2018RR-189142

PATIENT
  Age: 75 Year
  Sex: Female

DRUGS (6)
  1. SIMVASTATIN. [Interacting]
     Active Substance: SIMVASTATIN
     Indication: HYPERCHOLESTEROLAEMIA
     Dosage: |DOSIS UNIDAD FRECUENCIA: 60 MG DOSIS POR TOMA: 20 MG
     Route: 048
     Dates: start: 2013, end: 20150918
  2. ALOPURINOL [Interacting]
     Active Substance: ALLOPURINOL
     Indication: PRODUCT USED FOR UNKNOWN INDICATION
     Dosage: DOSIS UNIDAD FRECUENCIA: 100 MG DOSIS POR TOMA: 100 MG
     Route: 048
     Dates: start: 2015, end: 20150918
  3. METAMIZOL [Concomitant]
     Active Substance: METAMIZOLE SODIUM
     Indication: PRODUCT USED FOR UNKNOWN INDICATION
     Dosage: DOSIS UNIDAD FRECUENCIA: 1725 MG DOSIS POR TOMA: 575 MG
     Route: 048
     Dates: start: 2015, end: 20150918
  4. TRAMADOL HIDROCLORURO [Interacting]
     Active Substance: TRAMADOL HYDROCHLORIDE
     Indication: PRODUCT USED FOR UNKNOWN INDICATION
     Dosage: |DOSIS UNIDAD FRECUENCIA: 150 MG DOSIS POR TOMA: 50 MG
     Route: 048
     Dates: start: 2015, end: 20150918
  5. SINTROM [Interacting]
     Active Substance: ACENOCOUMAROL
     Indication: VALVULOPLASTY CARDIAC
     Dosage: UNK
     Route: 048
     Dates: start: 2013, end: 20150918
  6. OMEPRAZOLE. [Suspect]
     Active Substance: OMEPRAZOLE
     Indication: PRODUCT USED FOR UNKNOWN INDICATION
     Dosage: |DOSIS UNIDAD FRECUENCIA: 20 MG DOSIS POR TOMA: 20 MG
     Route: 048
     Dates: start: 2013, end: 20150918

REACTIONS (1)
  - Cerebral haemorrhage [Fatal]

NARRATIVE: CASE EVENT DATE: 20150918
